FAERS Safety Report 7527331-0 (Version None)
Quarter: 2011Q2

REPORT INFORMATION
  Report Type: 
  Country: None (occurrence: None)
  Receive Date: 20110607
  Receipt Date: 20110526
  Transmission Date: 20111010
  Serious: Yes (Life-Threatening, Hospitalization, Disabling)
  Sender: FDA-Public Use
  Company Number: AT-BAYER-201042097GPV

PATIENT
  Age: 40 Year
  Sex: Female
  Weight: 56 kg

DRUGS (1)
  1. MIRENA [Suspect]
     Indication: CONTRACEPTION
     Dosage: 20 ?G (DAILY DOSE), CONT, INTRA-UTERINE
     Route: 015
     Dates: start: 20060101, end: 20100510

REACTIONS (2)
  - BREAST MASS [None]
  - BREAST CANCER FEMALE [None]
